FAERS Safety Report 22035153 (Version 2)
Quarter: 2023Q1

REPORT INFORMATION
  Report Type: Spontaneous
  Country: US (occurrence: US)
  Receive Date: 20230224
  Receipt Date: 20230309
  Transmission Date: 20230418
  Serious: Yes (Life-Threatening, Hospitalization, Other)
  Sender: FDA-Public Use
  Company Number: US-009507513-2302USA001809

PATIENT
  Age: 42 Year
  Sex: Female
  Weight: 88.889 kg

DRUGS (16)
  1. KEYTRUDA [Suspect]
     Active Substance: PEMBROLIZUMAB
     Indication: Triple negative breast cancer
     Dosage: 200 MILLIGRAM, Q3W
     Route: 042
     Dates: start: 20211104, end: 20220512
  2. CARBOPLATIN [Suspect]
     Active Substance: CARBOPLATIN
     Indication: Triple negative breast cancer
     Dosage: WEEKLY
     Route: 042
     Dates: start: 20211104, end: 20220120
  3. TAXOL [Suspect]
     Active Substance: PACLITAXEL
     Indication: Triple negative breast cancer
     Dosage: WEEKLY
     Route: 042
     Dates: start: 20211104, end: 20220120
  4. DOXORUBICIN [Suspect]
     Active Substance: DOXORUBICIN
     Dosage: UNK
     Dates: start: 20220203, end: 20220328
  5. CYCLOPHOSPHAMIDE [Suspect]
     Active Substance: CYCLOPHOSPHAMIDE
     Dosage: UNK UNK, BID
     Dates: start: 20220203, end: 20220328
  6. NEUPOGEN [Suspect]
     Active Substance: FILGRASTIM
  7. CYCLOSPORINE [Suspect]
     Active Substance: CYCLOSPORINE
     Dosage: 5 MG/KG/DAY IN TWO DIVIDED DOSES, 150 MILLIGRAM, BID
     Dates: start: 202206, end: 20220818
  8. CYCLOSPORINE [Suspect]
     Active Substance: CYCLOSPORINE
     Dosage: 50 MILLIGRAM, BID
     Dates: start: 20220908
  9. CYCLOSPORINE [Suspect]
     Active Substance: CYCLOSPORINE
     Dosage: 200 MILLIGRAM, BID
     Dates: start: 20220915
  10. CYCLOSPORINE [Suspect]
     Active Substance: CYCLOSPORINE
     Dosage: 150 MILLIGRAM, BID
     Dates: start: 20230209
  11. DEXILANT [Concomitant]
     Active Substance: DEXLANSOPRAZOLE
  12. ASMANEX [Concomitant]
     Active Substance: MOMETASONE FUROATE
  13. SINGULAIR [Concomitant]
     Active Substance: MONTELUKAST SODIUM
  14. LIALDA [Concomitant]
     Active Substance: MESALAMINE
  15. LORATADINE [Concomitant]
     Active Substance: LORATADINE
  16. MAGNESIUM [Concomitant]
     Active Substance: MAGNESIUM

REACTIONS (37)
  - Neutropenic infection [Not Recovered/Not Resolved]
  - Pancytopenia [Unknown]
  - Cellulitis [Unknown]
  - Breast conserving surgery [Unknown]
  - Pyrexia [Unknown]
  - Swelling face [Unknown]
  - Sialoadenitis [Unknown]
  - Bone marrow failure [Unknown]
  - Megakaryocytes increased [Unknown]
  - Myeloid maturation arrest [Unknown]
  - Stump appendicitis [Unknown]
  - Radiotherapy [Unknown]
  - Neutropenia [Unknown]
  - Nasal congestion [Unknown]
  - Karnofsky scale abnormal [Unknown]
  - Body mass index increased [Unknown]
  - Body temperature decreased [Unknown]
  - Breast tenderness [Unknown]
  - Mean cell haemoglobin concentration increased [Unknown]
  - Mean cell haemoglobin increased [Unknown]
  - Stomatitis [Unknown]
  - Umbilical hernia [Unknown]
  - Overweight [Unknown]
  - Vitamin B12 decreased [Unknown]
  - Biopsy lymph gland [Unknown]
  - Pustule [Unknown]
  - Herpes zoster [Unknown]
  - Red blood cell count decreased [Unknown]
  - Haematocrit decreased [Unknown]
  - Pain [Unknown]
  - Fatigue [Unknown]
  - Insomnia [Unknown]
  - Nausea [Unknown]
  - Arthralgia [Unknown]
  - Constipation [Unknown]
  - Myalgia [Unknown]
  - Drug ineffective [Unknown]

NARRATIVE: CASE EVENT DATE: 20211101
